FAERS Safety Report 5484535-9 (Version None)
Quarter: 2007Q4

REPORT INFORMATION
  Report Type: 
  Country: None (occurrence: None)
  Receive Date: 20071012
  Receipt Date: 20071003
  Transmission Date: 20080405
  Serious: Yes (Other)
  Sender: FDA-Public Use
  Company Number: US-PFIZER INC-2007064869

PATIENT
  Sex: Female

DRUGS (2)
  1. XALATAN [Suspect]
     Indication: OPEN ANGLE GLAUCOMA
     Route: 031
     Dates: start: 20070308, end: 20070524
  2. TIMOPTIC-XE [Concomitant]
     Route: 031

REACTIONS (1)
  - CORNEAL DISORDER [None]
